FAERS Safety Report 8473884-8 (Version None)
Quarter: 2012Q2

REPORT INFORMATION
  Report Type: 
  Country: None (occurrence: None)
  Receive Date: 20120628
  Receipt Date: 20120223
  Transmission Date: 20120825
  Serious: Yes (Other)
  Sender: FDA-Public Use
  Company Number: US-MYLANLABS-2012S1000913

PATIENT
  Age: 47 Year
  Sex: Female

DRUGS (5)
  1. BACLOFEN [Concomitant]
  2. PROPRANOLOL [Concomitant]
  3. CLOZAPINE [Suspect]
     Indication: BIPOLAR DISORDER
     Route: 048
     Dates: start: 20110901, end: 20120113
  4. GEODON [Concomitant]
  5. LAMICTAL [Concomitant]

REACTIONS (2)
  - LEUKOPENIA [None]
  - GRANULOCYTOPENIA [None]
